FAERS Safety Report 8126186-3 (Version None)
Quarter: 2012Q1

REPORT INFORMATION
  Report Type: 
  Country: None (occurrence: None)
  Receive Date: 20120209
  Receipt Date: 20120206
  Transmission Date: 20120608
  Serious: Yes (Death)
  Sender: FDA-Public Use
  Company Number: PHHY2012US010177

PATIENT

DRUGS (2)
  1. VALSARTAN [Suspect]
     Dosage: 80 MG, EVERY DAY
  2. VALSARTAN [Suspect]
     Dosage: 320 MG, EVERY DAY

REACTIONS (1)
  - SUDDEN DEATH [None]
